FAERS Safety Report 21578506 (Version 1)
Quarter: 2022Q4

REPORT INFORMATION
  Report Type: Spontaneous
  Country: US (occurrence: US)
  Receive Date: 20221110
  Receipt Date: 20221110
  Transmission Date: 20230113
  Serious: No
  Sender: FDA-Public Use
  Company Number: US-ELI_LILLY_AND_COMPANY-US202211005563

PATIENT
  Age: 68 Year
  Sex: Female

DRUGS (3)
  1. TALTZ [Suspect]
     Active Substance: IXEKIZUMAB
     Indication: Psoriasis
     Dosage: 80 MG, MONTHLY (1/M)
     Route: 065
     Dates: start: 20210101, end: 20221004
  2. CLODERM [CLOCORTOLONE PIVALATE] [Concomitant]
     Indication: Product used for unknown indication
  3. TAPINAROF [Concomitant]
     Active Substance: TAPINAROF
     Indication: Product used for unknown indication

REACTIONS (1)
  - Chest pain [Recovered/Resolved]

NARRATIVE: CASE EVENT DATE: 20221004
